FAERS Safety Report 10504227 (Version 3)
Quarter: 2015Q3

REPORT INFORMATION
  Report Type: Spontaneous
  Country: US (occurrence: US)
  Receive Date: 20141008
  Receipt Date: 20150923
  Transmission Date: 20151125
  Serious: No
  Sender: FDA-Public Use
  Company Number: US-BEH-2014043047

PATIENT
  Sex: Female
  Weight: 75 kg

DRUGS (53)
  1. PRIVIGEN [Suspect]
     Active Substance: HUMAN IMMUNOGLOBULIN G
     Route: 042
  2. MECLIZINE [Concomitant]
     Active Substance: MECLIZINE\MECLIZINE HYDROCHLORIDE
  3. DHEA ACETATE [Concomitant]
     Active Substance: PRASTERONE ACETATE
  4. BUTORPHANOL [Concomitant]
     Active Substance: BUTORPHANOL
     Dosage: 10 MG/ML
  5. NEURONTIN [Concomitant]
     Active Substance: GABAPENTIN
  6. NAMENDA [Concomitant]
     Active Substance: MEMANTINE HYDROCHLORIDE
  7. MIRALAX [Concomitant]
     Active Substance: POLYETHYLENE GLYCOL 3350
  8. ALL OTHER THERAPEUTIC PRODUCTS [Concomitant]
     Active Substance: UNSPECIFIED INGREDIENT
  9. EPIPEN [Concomitant]
     Active Substance: EPINEPHRINE
  10. ONDANSETRON [Concomitant]
     Active Substance: ONDANSETRON
  11. RANITIDINE [Concomitant]
     Active Substance: RANITIDINE\RANITIDINE HYDROCHLORIDE
  12. TOPIRAMATE. [Concomitant]
     Active Substance: TOPIRAMATE
  13. IBUPROFEN. [Concomitant]
     Active Substance: IBUPROFEN
  14. MARINOL [Concomitant]
     Active Substance: DRONABINOL
  15. MAALOX MAX [Concomitant]
     Active Substance: ALUMINUM HYDROXIDE\DIMETHICONE\MAGNESIUM HYDROXIDE
  16. NYSTATIN. [Concomitant]
     Active Substance: NYSTATIN
     Dosage: 100,000 UNITS/ML
  17. XYLOCAINE [Concomitant]
     Active Substance: LIDOCAINE HYDROCHLORIDE
  18. DIPHENHYDRAMINE. [Concomitant]
     Active Substance: DIPHENHYDRAMINE
  19. HEPARIN [Concomitant]
     Active Substance: HEPARIN SODIUM
     Dosage: 100 UNITS/ML
  20. ARICEPT [Concomitant]
     Active Substance: DONEPEZIL HYDROCHLORIDE
  21. ZITHROMAX [Concomitant]
     Active Substance: AZITHROMYCIN DIHYDRATE
  22. DRONABINOL. [Concomitant]
     Active Substance: DRONABINOL
  23. FROVA [Concomitant]
     Active Substance: FROVATRIPTAN SUCCINATE
  24. CEFTIN [Concomitant]
     Active Substance: CEFUROXIME AXETIL
  25. PRIVIGEN [Suspect]
     Active Substance: HUMAN IMMUNOGLOBULIN G
     Indication: MULTIPLE SCLEROSIS
     Route: 042
  26. AMITRIPTYLINE HCL [Concomitant]
     Active Substance: AMITRIPTYLINE
  27. PROMETHAZINE [Concomitant]
     Active Substance: PROMETHAZINE\PROMETHAZINE HYDROCHLORIDE
  28. CYANOCOBALAMIN. [Concomitant]
     Active Substance: CYANOCOBALAMIN
     Dosage: 1000 MCG/ML
  29. PRIVIGEN [Suspect]
     Active Substance: HUMAN IMMUNOGLOBULIN G
     Indication: IMMUNODEFICIENCY COMMON VARIABLE
     Route: 042
  30. EFFEXOR XR [Concomitant]
     Active Substance: VENLAFAXINE HYDROCHLORIDE
  31. MORPHINE [Concomitant]
     Active Substance: MORPHINE
     Dosage: 2 MG/ML
  32. MELATONIN [Concomitant]
     Active Substance: MELATONIN
  33. ACETAMINOPHEN. [Concomitant]
     Active Substance: ACETAMINOPHEN
  34. VALIUM [Concomitant]
     Active Substance: DIAZEPAM
  35. SINGULAIR [Concomitant]
     Active Substance: MONTELUKAST SODIUM
  36. NORMAL SALINE [Concomitant]
     Active Substance: SODIUM CHLORIDE
  37. ZEGERID [Concomitant]
     Active Substance: OMEPRAZOLE\SODIUM BICARBONATE
     Dosage: 20-1100 MG
  38. LYRICA [Concomitant]
     Active Substance: PREGABALIN
  39. TEGRETOL [Concomitant]
     Active Substance: CARBAMAZEPINE
  40. PROCHLORPERAZINE. [Concomitant]
     Active Substance: PROCHLORPERAZINE
  41. ATIVAN [Concomitant]
     Active Substance: LORAZEPAM
  42. TIZANIDINE. [Concomitant]
     Active Substance: TIZANIDINE
  43. MELATONIN [Concomitant]
     Active Substance: MELATONIN
  44. ALBUTEROL. [Concomitant]
     Active Substance: ALBUTEROL
  45. EFFEXOR XR [Concomitant]
     Active Substance: VENLAFAXINE HYDROCHLORIDE
  46. RELPAX [Concomitant]
     Active Substance: ELETRIPTAN HYDROBROMIDE
  47. TRAMADOL HCL [Concomitant]
     Active Substance: TRAMADOL HYDROCHLORIDE
  48. CITALOPRAM [Concomitant]
     Active Substance: CITALOPRAM HYDROBROMIDE
  49. NEXIUM [Concomitant]
     Active Substance: ESOMEPRAZOLE MAGNESIUM
  50. CHLORPROMAZINE. [Concomitant]
     Active Substance: CHLORPROMAZINE
  51. SONATA [Concomitant]
     Active Substance: ZALEPLON
  52. CRANBERRY. [Concomitant]
     Active Substance: CRANBERRY
  53. NORCO [Concomitant]
     Active Substance: ACETAMINOPHEN\HYDROCODONE BITARTRATE
     Dosage: 5-325

REACTIONS (2)
  - Infection [Not Recovered/Not Resolved]
  - Respiratory disorder [Unknown]
